FAERS Safety Report 14236644 (Version 2)
Quarter: 2017Q4

REPORT INFORMATION
  Report Type: Spontaneous
  Country: FR (occurrence: FR)
  Receive Date: 20171129
  Receipt Date: 20171205
  Transmission Date: 20180321
  Serious: Yes (Other)
  Sender: FDA-Public Use
  Company Number: FR-SA-2017SA235225

PATIENT
  Sex: Female

DRUGS (2)
  1. AUBAGIO [Suspect]
     Active Substance: TERIFLUNOMIDE
     Route: 048
     Dates: start: 201412
  2. BIOTIN [Suspect]
     Active Substance: BIOTIN
     Route: 065
     Dates: start: 201706

REACTIONS (3)
  - Blood thyroid stimulating hormone decreased [Recovered/Resolved]
  - Hyperthyroidism [Recovered/Resolved]
  - Thyroxine increased [Recovered/Resolved]

NARRATIVE: CASE EVENT DATE: 201711
